FAERS Safety Report 7412891-0 (Version None)
Quarter: 2011Q2

REPORT INFORMATION
  Report Type: 
  Country: None (occurrence: None)
  Receive Date: 20110413
  Receipt Date: 20110404
  Transmission Date: 20111010
  Serious: Yes (Death, Hospitalization)
  Sender: FDA-Public Use
  Company Number: US-GENENTECH-223407

PATIENT
  Age: 21 Year
  Sex: Male

DRUGS (7)
  1. VINCRISTINE [Concomitant]
     Indication: B-CELL LYMPHOMA
     Dates: start: 20030701, end: 20030901
  2. CYCLOPHOSPHAMIDE [Concomitant]
     Indication: B-CELL LYMPHOMA
     Dates: start: 20030701, end: 20030901
  3. PREDNISONE [Concomitant]
     Indication: B-CELL LYMPHOMA
     Dates: start: 20030701, end: 20030901
  4. RITUXAN [Suspect]
     Indication: B-CELL LYMPHOMA
     Dates: start: 20030701, end: 20030901
  5. DOXORUBICIN [Concomitant]
     Indication: B-CELL LYMPHOMA
     Dates: start: 20030701, end: 20030901
  6. ATROVENT [Concomitant]
     Indication: WHEEZING
  7. BACTRIM [Concomitant]
     Indication: ANTIFUNGAL PROPHYLAXIS

REACTIONS (3)
  - HEPATIC FAILURE [None]
  - HEPATITIS B [None]
  - PNEUMONIA [None]
